FAERS Safety Report 24803973 (Version 1)
Quarter: 2025Q1

REPORT INFORMATION
  Report Type: Report from Study
  Country: US (occurrence: US)
  Receive Date: 20250103
  Receipt Date: 20250103
  Transmission Date: 20250409
  Serious: No
  Sender: ACADIA PHARMACEUTICALS
  Company Number: US-ACADIA PHARMACEUTICALS INC.-ACA-2025-PIM-000017

PATIENT
  Sex: Male

DRUGS (11)
  1. NUPLAZID [Suspect]
     Active Substance: PIMAVANSERIN TARTRATE
     Indication: Parkinson^s disease
  2. NUPLAZID [Suspect]
     Active Substance: PIMAVANSERIN TARTRATE
     Dosage: 34 MILLIGRAM, QD
     Route: 048
     Dates: start: 20230331
  3. calcium + D/minerals [Concomitant]
  4. CARBIDOPA\LEVODOPA [Concomitant]
     Active Substance: CARBIDOPA\LEVODOPA
  5. ENTACAPONE [Concomitant]
     Active Substance: ENTACAPONE
  6. FISH OIL [Concomitant]
     Active Substance: FISH OIL
  7. GABAPENTIN [Concomitant]
     Active Substance: GABAPENTIN
  8. GOCOVRI [Concomitant]
     Active Substance: AMANTADINE
  9. NAPROXEN SOD [Concomitant]
  10. RASAGILINE MESYLATE [Concomitant]
     Active Substance: RASAGILINE MESYLATE
  11. ROPINIROLE [Concomitant]
     Active Substance: ROPINIROLE

REACTIONS (4)
  - Condition aggravated [Unknown]
  - Memory impairment [Unknown]
  - Balance disorder [Unknown]
  - Product dose omission issue [Unknown]
